FAERS Safety Report 6104337-X (Version None)
Quarter: 2009Q1

REPORT INFORMATION
  Report Type: 
  Country: None (occurrence: None)
  Receive Date: 20090305
  Receipt Date: 20090223
  Transmission Date: 20090719
  Serious: Yes (Other)
  Sender: FDA-Public Use
  Company Number: US-PFIZER INC-2009176952

PATIENT
  Age: 12 Year
  Sex: Male

DRUGS (4)
  1. ZYRTEC [Suspect]
     Indication: RHINORRHOEA
     Dosage: TWO TEASPOONS EVERY 24 HOURS
     Route: 048
     Dates: start: 20090216, end: 20090217
  2. LAMICTAL [Concomitant]
     Indication: CONVULSION
     Dosage: 100 MG, 1X/DAY
     Dates: start: 20030101
  3. FELBATOL [Concomitant]
     Indication: CONVULSION
     Dosage: 900 MG, 2X/DAY
     Dates: start: 20030101
  4. DRUG, UNSPECIFIED [Concomitant]
     Indication: CONVULSION
     Dosage: 10 MG, 1X/DAY
     Dates: start: 20070101

REACTIONS (1)
  - HYPERSENSITIVITY [None]
